FAERS Safety Report 15124559 (Version 1)
Quarter: 2018Q3

REPORT INFORMATION
  Report Type: Spontaneous
  Country: US (occurrence: US)
  Receive Date: 20180613
  Receipt Date: 20180613
  Transmission Date: 20181010
  Serious: No
  Sender: FDA-Public Use
  Company Number: None

PATIENT
  Age: 29 Year
  Sex: Female

DRUGS (1)
  1. ISIBLOOM [Suspect]
     Active Substance: DESOGESTREL\ETHINYL ESTRADIOL
     Route: 048

REACTIONS (5)
  - Abdominal pain upper [None]
  - Abdominal distension [None]
  - Eye pain [None]
  - Dry eye [None]
  - Weight increased [None]

NARRATIVE: CASE EVENT DATE: 20180613
